FAERS Safety Report 9745362 (Version 2)
Quarter: 2013Q4

REPORT INFORMATION
  Report Type: Spontaneous
  Country: BR (occurrence: BR)
  Receive Date: 20131211
  Receipt Date: 20131211
  Transmission Date: 20140711
  Serious: Yes (Death)
  Sender: FDA-Public Use
  Company Number: BR-PFIZER INC-2013118964

PATIENT
  Age: 60 Year
  Sex: Male
  Weight: 80 kg

DRUGS (7)
  1. SUTENT [Suspect]
     Indication: RENAL CELL CARCINOMA
     Dosage: 50 MG, CYCLIC (CYCLE 4X2), 1X/DAY
     Route: 048
     Dates: start: 20130410
  2. SUTENT [Suspect]
     Dosage: 50 MG, 1X/DAY
     Route: 048
     Dates: start: 201305
  3. BROMOPRIDE [Concomitant]
     Indication: NAUSEA
     Dosage: 10 MG, UNK
  4. LIORAM [Concomitant]
     Indication: SLEEP DISORDER
     Dosage: 10 MG, UNK
  5. PANTOPRAZOL [Concomitant]
     Indication: GASTRIC DISORDER
     Dosage: 40 MG, UNK
  6. INSULIN SUSPENSION, NPH [Concomitant]
     Indication: DIABETES MELLITUS
     Dosage: 16 IU IN THE MORNING AND 12 IU AT NIGHT
  7. DIOVAN [Concomitant]
     Indication: DIABETES MELLITUS
     Dosage: UNK

REACTIONS (5)
  - Death [Fatal]
  - Pain in extremity [Unknown]
  - Decreased appetite [Unknown]
  - Blood pressure increased [Unknown]
  - Skin burning sensation [Not Recovered/Not Resolved]
